FAERS Safety Report 6752763-8 (Version None)
Quarter: 2010Q2

REPORT INFORMATION
  Report Type: 
  Country: None (occurrence: None)
  Receive Date: 20100602
  Receipt Date: 20100602
  Transmission Date: 20101027
  Serious: Yes (Hospitalization)
  Sender: FDA-Public Use
  Company Number: None

PATIENT
  Sex: Male
  Weight: 70.76 kg

DRUGS (2)
  1. CISPLATIN [Suspect]
     Dosage: 200 MG
     Dates: end: 20100405
  2. ETOPOSIDE [Suspect]
     Dosage: 1362 MG
     Dates: end: 20100407

REACTIONS (3)
  - HYPOAESTHESIA [None]
  - MUSCULAR WEAKNESS [None]
  - PARAESTHESIA [None]
